FAERS Safety Report 11849034 (Version 1)
Quarter: 2015Q4

REPORT INFORMATION
  Report Type: Spontaneous
  Country: FR (occurrence: FR)
  Receive Date: 20151218
  Receipt Date: 20151218
  Transmission Date: 20160305
  Serious: Yes (Death)
  Sender: FDA-Public Use
  Company Number: FR-JAZZ-2015-FR-021662

PATIENT

DRUGS (4)
  1. ERWINASE [Suspect]
     Active Substance: ASPARAGINASE ERWINIA CHRYSANTHEMI
     Indication: ACUTE LYMPHOCYTIC LEUKAEMIA
     Dosage: 25000 IU/M2, QOD
     Route: 042
     Dates: start: 20141205, end: 20141213
  2. ERWINASE [Suspect]
     Active Substance: ASPARAGINASE ERWINIA CHRYSANTHEMI
     Dosage: 25000 UNK, UNK
     Route: 042
     Dates: start: 20141216, end: 20141216
  3. ERWINASE [Suspect]
     Active Substance: ASPARAGINASE ERWINIA CHRYSANTHEMI
     Dosage: 25000 UNK, QOD
     Route: 042
     Dates: start: 20150306, end: 20150308
  4. ERWINASE [Suspect]
     Active Substance: ASPARAGINASE ERWINIA CHRYSANTHEMI
     Dosage: 25000 UNK, QOD
     Route: 042
     Dates: start: 20150519, end: 20150521

REACTIONS (1)
  - Disease recurrence [Fatal]

NARRATIVE: CASE EVENT DATE: 20150728
